FAERS Safety Report 8621401-1 (Version None)
Quarter: 2012Q3

REPORT INFORMATION
  Report Type: 
  Country: None (occurrence: None)
  Receive Date: 20120824
  Receipt Date: 20120821
  Transmission Date: 20120928
  Serious: No
  Sender: FDA-Public Use
  Company Number: US-PFIZER INC-2012205284

PATIENT
  Age: 50 Year
  Sex: Female
  Weight: 54.42 kg

DRUGS (2)
  1. OXYCODONE [Concomitant]
     Dosage: 5 MG, 4X/DAY
  2. CELEBREX [Suspect]
     Indication: ARTHRITIS
     Dosage: 200 MG, 1X/DAY
     Route: 048
     Dates: start: 20110101

REACTIONS (6)
  - BACK PAIN [None]
  - NECK PAIN [None]
  - RASH [None]
  - URTICARIA [None]
  - INCORRECT DOSE ADMINISTERED [None]
  - EXPOSURE TO TOXIC AGENT [None]
